FAERS Safety Report 7556869-5 (Version None)
Quarter: 2011Q2

REPORT INFORMATION
  Report Type: 
  Country: None (occurrence: None)
  Receive Date: 20110616
  Receipt Date: 20110616
  Transmission Date: 20111010
  Serious: Yes (Life-Threatening, Hospitalization, Disabling)
  Sender: FDA-Public Use
  Company Number: None

PATIENT
  Age: 39 Year
  Sex: Female
  Weight: 70.3075 kg

DRUGS (13)
  1. LEVEMIR [Concomitant]
  2. TRAMADOL HCL [Concomitant]
  3. HYDROXYCHLOROQUINE SULFATE [Concomitant]
  4. TRYCOR [Concomitant]
  5. HUMALOG SLIDING [Concomitant]
  6. MACUGEN [Suspect]
     Indication: DIABETIC RETINAL OEDEMA
     Dosage: 0.3MG  Q4W / 046
     Dates: start: 20100602
  7. LYRICA [Concomitant]
  8. BIRTH CONTR [Concomitant]
  9. HUMALOG [Concomitant]
  10. CYMBALTA [Concomitant]
  11. MACUGEN [Suspect]
     Indication: DIABETIC RETINAL OEDEMA
     Dosage: 0.3MG / Q4W / 046
     Dates: start: 20100630
  12. HYOSCAYAMINE [Concomitant]
  13. METHOCARBAMOL [Concomitant]

REACTIONS (7)
  - ALVEOLITIS ALLERGIC [None]
  - HYPERHIDROSIS [None]
  - URINE OUTPUT DECREASED [None]
  - ACUTE RESPIRATORY FAILURE [None]
  - CHEST PAIN [None]
  - CHILLS [None]
  - ABDOMINAL PAIN UPPER [None]
